FAERS Safety Report 10085740 (Version 1)
Quarter: 2014Q2

REPORT INFORMATION
  Report Type: Spontaneous
  Country: GB (occurrence: GB)
  Receive Date: 20140418
  Receipt Date: 20140418
  Transmission Date: 20141212
  Serious: Yes (Other)
  Sender: FDA-Public Use
  Company Number: GB-JNJFOC-20140409110

PATIENT
  Age: 45 Year
  Sex: Male

DRUGS (4)
  1. XARELTO [Suspect]
     Indication: THROMBOSIS PROPHYLAXIS
     Route: 048
  2. XARELTO [Suspect]
     Indication: THROMBOSIS PROPHYLAXIS
     Route: 048
  3. XARELTO [Suspect]
     Indication: ARTERIAL OCCLUSIVE DISEASE
     Route: 048
  4. XARELTO [Suspect]
     Indication: ARTERIAL OCCLUSIVE DISEASE
     Route: 048

REACTIONS (2)
  - Arterial occlusive disease [Unknown]
  - Drug dose omission [Unknown]
